FAERS Safety Report 8429904-X (Version None)
Quarter: 2012Q2

REPORT INFORMATION
  Report Type: 
  Country: None (occurrence: None)
  Receive Date: 20120510
  Receipt Date: 20120504
  Transmission Date: 20120825
  Serious: Yes (Life-Threatening, Hospitalization, Other)
  Sender: FDA-Public Use
  Company Number: 2011029448

PATIENT
  Sex: Female
  Weight: 95.2554 kg

DRUGS (9)
  1. VICODIN [Concomitant]
  2. PEPCID [Concomitant]
  3. SUDAFED 12 HOUR [Concomitant]
  4. VITAMIN D [Concomitant]
  5. BERINERT [Suspect]
     Indication: HEREDITARY ANGIOEDEMA
     Dosage: SEE IMAGE, INTRAVENOUS
     Route: 042
     Dates: start: 20110712, end: 20110712
  6. BERINERT [Suspect]
     Indication: HEREDITARY ANGIOEDEMA
     Dosage: SEE IMAGE, INTRAVENOUS
     Route: 042
     Dates: start: 20110630, end: 20110712
  7. ZYRTEC [Concomitant]
  8. BENADRYL [Concomitant]
  9. ACETAMINOPHEN [Concomitant]

REACTIONS (9)
  - ABDOMINAL PAIN [None]
  - SPHINCTER OF ODDI DYSFUNCTION [None]
  - JUGULAR VEIN THROMBOSIS [None]
  - SUBCLAVIAN VEIN THROMBOSIS [None]
  - DEEP VEIN THROMBOSIS [None]
  - ANAEMIA [None]
  - FACTITIOUS DISORDER [None]
  - MUNCHAUSEN'S SYNDROME [None]
  - AXILLARY VEIN THROMBOSIS [None]
